FAERS Safety Report 4513793-X (Version None)
Quarter: 2004Q4

REPORT INFORMATION
  Report Type: 
  Country: None (occurrence: None)
  Receive Date: 20041130
  Receipt Date: 20041027
  Transmission Date: 20050328
  Serious: No
  Sender: FDA-Public Use
  Company Number: US-GLAXOSMITHKLINE-A0531577A

PATIENT
  Age: 48 Year
  Sex: Male

DRUGS (6)
  1. WELLBUTRIN XL [Suspect]
     Dosage: 300MG PER DAY
     Route: 048
     Dates: start: 20030101
  2. WELLBUTRIN SR [Suspect]
     Indication: DRUG USE FOR UNKNOWN INDICATION
     Dosage: 150MG TWICE PER DAY
     Route: 048
  3. DEPAKOTE [Concomitant]
  4. LORAZEPAM [Concomitant]
  5. REMERON [Concomitant]
  6. PREVACID [Concomitant]

REACTIONS (1)
  - DRUG INEFFECTIVE [None]
